FAERS Safety Report 10494279 (Version 1)
Quarter: 2014Q4

REPORT INFORMATION
  Report Type: Spontaneous
  Country: US (occurrence: US)
  Receive Date: 20141003
  Receipt Date: 20141003
  Transmission Date: 20150528
  Serious: Yes (Hospitalization)
  Sender: FDA-Public Use
  Company Number: US-GLAXOSMITHKLINE-A1090854A

PATIENT
  Age: 62 Year
  Sex: Female

DRUGS (2)
  1. LISINOPRIL. [Concomitant]
     Active Substance: LISINOPRIL
  2. ADVAIR HFA [Suspect]
     Active Substance: FLUTICASONE PROPIONATE\SALMETEROL XINAFOATE
     Indication: BRONCHITIS
     Dosage: 1PUFF TWICE PER DAY
     Route: 055
     Dates: start: 201302

REACTIONS (6)
  - Dyspnoea [Unknown]
  - Expired product administered [Unknown]
  - Malignant melanoma [Unknown]
  - Underdose [Unknown]
  - Knee arthroplasty [Unknown]
  - Arthropathy [Unknown]

NARRATIVE: CASE EVENT DATE: 2013
